FAERS Safety Report 22929889 (Version 2)
Quarter: 2023Q4

REPORT INFORMATION
  Report Type: Spontaneous
  Country: JP (occurrence: JP)
  Receive Date: 20230911
  Receipt Date: 20231002
  Transmission Date: 20240109
  Serious: Yes (Death, Other)
  Sender: FDA-Public Use
  Company Number: JP-MSD-M2023-36563

PATIENT
  Age: 79 Year
  Sex: Male

DRUGS (14)
  1. LAGEVRIO [Suspect]
     Active Substance: MOLNUPIRAVIR
     Indication: COVID-19 treatment
     Dosage: 800 MILLIGRAM, BID
     Route: 048
     Dates: start: 20230819, end: 20230823
  2. IPRAGLIFLOZIN L-PROLINE\SITAGLIPTIN PHOSPHATE [Concomitant]
     Active Substance: IPRAGLIFLOZIN L-PROLINE\SITAGLIPTIN PHOSPHATE
     Dosage: 1 DOSAGE FORM, QD
     Route: 048
  3. AMLODIPINE\TELMISARTAN [Concomitant]
     Active Substance: AMLODIPINE\TELMISARTAN
     Dosage: 1 DOSAGE FORM, QD
     Route: 048
  4. ROSUVASTATIN CALCIUM [Concomitant]
     Active Substance: ROSUVASTATIN CALCIUM
     Dosage: 1 DOSAGE FORM, QD
     Route: 048
  5. ISOSORBIDE MONONITRATE [Concomitant]
     Active Substance: ISOSORBIDE MONONITRATE
     Dosage: 1 DOSAGE FORM, BID
     Route: 048
  6. AM [ALUMINIUM HYDROXIDE GEL, DRIED;AMYLASE;CALCIUM CARBONATE;HERBAL EX [Concomitant]
     Dosage: 1 DOSAGE FORM, TID
     Route: 048
  7. HERBALS [Concomitant]
     Active Substance: HERBALS
     Dosage: 3 DOSAGE FORM, QD
     Route: 065
  8. HERBALS [Concomitant]
     Active Substance: HERBALS
     Dosage: 1 DOSAGE FORM, QD
     Route: 065
  9. HERBALS [Concomitant]
     Active Substance: HERBALS
     Dosage: 3 DOSAGE FORM, QD
     Route: 065
  10. HERBALS [Concomitant]
     Active Substance: HERBALS
     Dosage: 1 DOSAGE FORM, QD
     Route: 065
  11. VIBEGRON [Concomitant]
     Active Substance: VIBEGRON
     Dosage: 1 DOSAGE FORM, QD
     Route: 048
  12. GLIMEPIRIDE [Concomitant]
     Active Substance: GLIMEPIRIDE
     Dosage: 1 DOSAGE FORM, QD
     Route: 048
  13. RYZODEG 70/30 [Concomitant]
     Active Substance: INSULIN ASPART\INSULIN DEGLUDEC
     Dosage: 8 DOSAGE FORM
     Route: 065
  14. RYZODEG 70/30 [Concomitant]
     Active Substance: INSULIN ASPART\INSULIN DEGLUDEC
     Dosage: 12 DOSAGE FORM
     Route: 065

REACTIONS (3)
  - Disseminated intravascular coagulation [Fatal]
  - Pneumonia [Unknown]
  - Multiple organ dysfunction syndrome [Unknown]

NARRATIVE: CASE EVENT DATE: 20230101
